FAERS Safety Report 9416135 (Version 1)
Quarter: 2013Q3

REPORT INFORMATION
  Report Type: Spontaneous
  Country: US (occurrence: US)
  Receive Date: 20130724
  Receipt Date: 20130724
  Transmission Date: 20140515
  Serious: Yes (Other)
  Sender: FDA-Public Use
  Company Number: US-ASTRAZENECA-2012SE88296

PATIENT
  Age: 38 Year
  Sex: Female

DRUGS (2)
  1. SEROQUEL XR [Suspect]
     Route: 048
  2. SEROQUEL XR [Suspect]
     Route: 048

REACTIONS (4)
  - Convulsion [Unknown]
  - Fear of death [Unknown]
  - Insomnia [Unknown]
  - Drug dose omission [Unknown]
